FAERS Safety Report 5282075-3 (Version None)
Quarter: 2007Q1

REPORT INFORMATION
  Report Type: 
  Country: None (occurrence: None)
  Receive Date: 20070330
  Receipt Date: 20070315
  Transmission Date: 20070707
  Serious: Yes (Hospitalization, Other)
  Sender: FDA-Public Use
  Company Number: US-PFIZER INC-2006055746

PATIENT
  Sex: Female
  Weight: 63.5 kg

DRUGS (2)
  1. BEXTRA [Suspect]
     Indication: PAIN MANAGEMENT
     Dosage: TEXT:10 OR 20 MG-FREQ:ONCE OR TWICE A DAY
  2. BEXTRA [Suspect]
     Indication: BACK PAIN

REACTIONS (2)
  - CEREBROVASCULAR ACCIDENT [None]
  - TRANSIENT ISCHAEMIC ATTACK [None]
